FAERS Safety Report 4980938-7 (Version None)
Quarter: 2006Q2

REPORT INFORMATION
  Report Type: 
  Country: None (occurrence: None)
  Receive Date: 20060418
  Receipt Date: 20060331
  Transmission Date: 20061013
  Serious: Yes (Hospitalization)
  Sender: FDA-Public Use
  Company Number: 033106

PATIENT
  Age: 64 Year
  Sex: Female
  Weight: 49.8957 kg

DRUGS (1)
  1. CVS CHEST CONGESTION RELIEF DM TABLETS (400MG GUAIFENESIN, 20MG DEXTRO [Suspect]
     Indication: COUGH
     Dosage: 1 TABLET EVERY 4 HRS
     Dates: start: 20060326

REACTIONS (2)
  - DRUG HYPERSENSITIVITY [None]
  - THROAT TIGHTNESS [None]
